FAERS Safety Report 17701076 (Version 1)
Quarter: 2020Q2

REPORT INFORMATION
  Report Type: Spontaneous
  Country: US (occurrence: US)
  Receive Date: 20200424
  Receipt Date: 20200424
  Transmission Date: 20200714
  Serious: Yes (Other)
  Sender: FDA-Public Use
  Company Number: US-AUROBINDO-AUR-APL-2020-018984

PATIENT
  Age: 57 Year
  Sex: Male

DRUGS (1)
  1. CARVEDILOL. [Suspect]
     Active Substance: CARVEDILOL
     Indication: CARDIOMYOPATHY
     Dosage: UNK
     Route: 065

REACTIONS (5)
  - Paraganglion neoplasm malignant [Unknown]
  - Headache [Unknown]
  - Hypertension [Unknown]
  - Phaeochromocytoma [Unknown]
  - Unmasking of previously unidentified disease [Unknown]
